FAERS Safety Report 10047238 (Version 2)
Quarter: 2014Q1

REPORT INFORMATION
  Report Type: Spontaneous
  Country: US (occurrence: US)
  Receive Date: 20140331
  Receipt Date: 20140331
  Transmission Date: 20141002
  Serious: No
  Sender: FDA-Public Use
  Company Number: US-MYLANLABS-2013S1022866

PATIENT
  Age: 70 Year
  Sex: Male
  Weight: 94.8 kg

DRUGS (2)
  1. FENTANYL TRANSDERMAL SYSTEM [Suspect]
     Indication: PAIN
     Dosage: CHANGES Q48H
     Route: 062
     Dates: start: 2006
  2. ACETAMINOPHEN W/OXYCODONE [Concomitant]
     Route: 048

REACTIONS (4)
  - Pain in extremity [Recovered/Resolved]
  - Malaise [Recovered/Resolved]
  - Application site pruritus [Not Recovered/Not Resolved]
  - Application site erythema [Not Recovered/Not Resolved]
